FAERS Safety Report 5193416-X (Version None)
Quarter: 2006Q4

REPORT INFORMATION
  Report Type: 
  Country: None (occurrence: None)
  Receive Date: 20061228
  Receipt Date: 20060418
  Transmission Date: 20070319
  Serious: No
  Sender: FDA-Public Use
  Company Number: US-GLAXOSMITHKLINE-A0602149A

PATIENT
  Age: 50 Year
  Sex: Female

DRUGS (4)
  1. FLONASE [Suspect]
     Dosage: 50MCG VARIABLE DOSE
     Route: 045
     Dates: end: 20050801
  2. CLOBETASOL PROPIONATE [Concomitant]
  3. ZANTAC [Concomitant]
  4. MECLIZINE [Concomitant]

REACTIONS (1)
  - SLEEP TERROR [None]
